FAERS Safety Report 15585334 (Version 1)
Quarter: 2018Q4

REPORT INFORMATION
  Report Type: Spontaneous
  Country: JP (occurrence: JP)
  Receive Date: 20181105
  Receipt Date: 20181105
  Transmission Date: 20190205
  Serious: Yes (Other)
  Sender: FDA-Public Use
  Company Number: JP-GLAXOSMITHKLINE-JP2018JPN197747

PATIENT

DRUGS (1)
  1. ZEFIX [Suspect]
     Active Substance: LAMIVUDINE
     Dosage: UNK
     Route: 048

REACTIONS (1)
  - Dialysis [Unknown]
